FAERS Safety Report 10707407 (Version 1)
Quarter: 2015Q1

REPORT INFORMATION
  Report Type: Spontaneous
  Country: US (occurrence: None)
  Receive Date: 20150112
  Receipt Date: 20150112
  Transmission Date: 20150721
  Serious: No
  Sender: FDA-Public Use
  Company Number: None

PATIENT
  Age: 68 Year
  Sex: Male
  Weight: 99.79 kg

DRUGS (1)
  1. VANCOMYCIN [Suspect]
     Active Substance: VANCOMYCIN
     Indication: URINARY TRACT INFECTION
     Dosage: 2 PILLS
     Route: 048
     Dates: start: 20150106, end: 20150107

REACTIONS (4)
  - Incoherent [None]
  - Confusional state [None]
  - Chills [None]
  - Nausea [None]

NARRATIVE: CASE EVENT DATE: 20150107
